FAERS Safety Report 13037798 (Version 1)
Quarter: 2016Q4

REPORT INFORMATION
  Report Type: Spontaneous
  Country: US (occurrence: US)
  Receive Date: 20161218
  Receipt Date: 20161218
  Transmission Date: 20170207
  Serious: No
  Sender: FDA-Public Use
  Company Number: US-ASTRAZENECA-2016SF30438

PATIENT
  Age: 85 Year
  Sex: Female
  Weight: 44.9 kg

DRUGS (2)
  1. PULMICORT FLEXHALER [Suspect]
     Active Substance: BUDESONIDE
     Indication: ASTHMA
     Dosage: 180 MCG ONE INHALATION TWICE A DAY
     Route: 055
     Dates: start: 2016
  2. PULMICORT FLEXHALER [Suspect]
     Active Substance: BUDESONIDE
     Indication: CHRONIC OBSTRUCTIVE PULMONARY DISEASE
     Dosage: 180 MCG ONE INHALATION TWICE A DAY
     Route: 055
     Dates: start: 2016

REACTIONS (10)
  - Weight decreased [Unknown]
  - Drug dose omission [Unknown]
  - Off label use [Unknown]
  - Hypotension [Recovered/Resolved]
  - Product use issue [Unknown]
  - Dyspepsia [Unknown]
  - Incorrect product storage [Unknown]
  - Malaise [Unknown]
  - Visual acuity reduced [Unknown]
  - Product quality issue [Unknown]

NARRATIVE: CASE EVENT DATE: 2016
